FAERS Safety Report 7190463-3 (Version None)
Quarter: 2010Q4

REPORT INFORMATION
  Report Type: 
  Country: None (occurrence: None)
  Receive Date: 20101223
  Receipt Date: 20101214
  Transmission Date: 20110411
  Serious: Yes (Other)
  Sender: FDA-Public Use
  Company Number: IT-JNJFOC-20101205767

PATIENT
  Age: 30 Year
  Sex: Female

DRUGS (5)
  1. INFLIXIMAB, RECOMBINANT [Suspect]
     Indication: CROHN'S DISEASE
     Dosage: RECEIVED INDUCTION DOSES AT WEEKS 0, 2 AND 6
     Route: 042
  2. INFLIXIMAB, RECOMBINANT [Suspect]
     Dosage: AFTER THE 16TH INFUSION
     Route: 042
  3. METHOTREXATE [Suspect]
     Indication: CROHN'S DISEASE
     Route: 048
  4. PREDNISONE [Concomitant]
     Indication: CROHN'S DISEASE
  5. CALCIUM CHANNEL BLOCKER [Concomitant]
     Indication: GESTATIONAL HYPERTENSION

REACTIONS (5)
  - CAESAREAN SECTION [None]
  - CROHN'S DISEASE [None]
  - DRUG EXPOSURE DURING PREGNANCY [None]
  - GESTATIONAL HYPERTENSION [None]
  - PREMATURE LABOUR [None]
